FAERS Safety Report 7386964-5 (Version None)
Quarter: 2011Q1

REPORT INFORMATION
  Report Type: 
  Country: None (occurrence: None)
  Receive Date: 20110323
  Receipt Date: 20110309
  Transmission Date: 20110831
  Serious: Yes (Other)
  Sender: FDA-Public Use
  Company Number: 021932

PATIENT
  Age: 22 Year
  Sex: Male

DRUGS (2)
  1. LACOSAMIDE [Suspect]
     Indication: EPILEPSY
     Dosage: TITRATED DOSE UPTO 100MG, 100 MG, 200 MG
  2. CARBAMAZEPINE [Suspect]
     Indication: EPILEPSY
     Dosage: 180 MG, 1200 MG

REACTIONS (6)
  - DRUG LEVEL BELOW THERAPEUTIC [None]
  - DRUG INTERACTION [None]
  - VISION BLURRED [None]
  - NEUROTOXICITY [None]
  - DIZZINESS [None]
  - DEPRESSED LEVEL OF CONSCIOUSNESS [None]
